FAERS Safety Report 15667032 (Version 1)
Quarter: 2018Q4

REPORT INFORMATION
  Report Type: Spontaneous
  Country: US (occurrence: US)
  Receive Date: 20181128
  Receipt Date: 20181128
  Transmission Date: 20190205
  Serious: No
  Sender: FDA-Public Use
  Company Number: US-ROCHE-2173872

PATIENT
  Sex: Female

DRUGS (5)
  1. VERAPAMIL HCL [Concomitant]
     Active Substance: VERAPAMIL HYDROCHLORIDE
     Dosage: VERAPAMIL HCL ER?ONGOING:UNKNOWN
     Route: 065
  2. BESIVANCE [Concomitant]
     Active Substance: BESIFLOXACIN
     Dosage: ONGOING:UNKNOWN
     Route: 065
  3. PREDNISOLONE ACETATE. [Concomitant]
     Active Substance: PREDNISOLONE ACETATE
     Dosage: ONGOING:UNKNOWN
     Route: 065
  4. BACLOFEN. [Concomitant]
     Active Substance: BACLOFEN
     Dosage: ONGOING: UNKNOWN
     Route: 065
  5. OCREVUS [Suspect]
     Active Substance: OCRELIZUMAB
     Indication: MULTIPLE SCLEROSIS
     Dosage: ONGOING: UNKNOWN
     Route: 065

REACTIONS (1)
  - Feeling abnormal [Unknown]
